FAERS Safety Report 4523930-9 (Version None)
Quarter: 2004Q4

REPORT INFORMATION
  Report Type: 
  Country: None (occurrence: None)
  Receive Date: 20041209
  Receipt Date: 20041129
  Transmission Date: 20050328
  Serious: Yes (Death)
  Sender: FDA-Public Use
  Company Number: SUS1-2004-00783

PATIENT
  Age: 19 Year
  Sex: Female

DRUGS (4)
  1. CARBATROL [Suspect]
     Indication: AFFECTIVE DISORDER
     Dosage: 300 MG, EVERY 12 HOURS,
  2. SEROQUEL [Suspect]
     Indication: IMPULSIVE BEHAVIOUR
     Dosage: 200 MG, EVERY HS,
  3. RISPERDAL [Suspect]
     Indication: IMPULSIVE BEHAVIOUR
     Dosage: 1 MG, 1X/DAY; QD IN AM,
  4. DEPO-PROVERA SUSPENSION/INJ [Concomitant]

REACTIONS (8)
  - BRONCHITIS [None]
  - COUGH [None]
  - DIZZINESS [None]
  - FEELING ABNORMAL [None]
  - LOSS OF CONSCIOUSNESS [None]
  - PAIN IN EXTREMITY [None]
  - PULMONARY EMBOLISM [None]
  - TREATMENT NONCOMPLIANCE [None]
